FAERS Safety Report 9811672 (Version 3)
Quarter: 2014Q4

REPORT INFORMATION
  Report Type: Spontaneous
  Country: US (occurrence: US)
  Receive Date: 20140110
  Receipt Date: 20141111
  Transmission Date: 20150529
  Serious: Yes (Other)
  Sender: FDA-Public Use
  Company Number: US-SANOFI-AVENTIS-2013SA059306

PATIENT
  Sex: Female

DRUGS (1)
  1. PLAVIX [Suspect]
     Active Substance: CLOPIDOGREL BISULFATE
     Indication: PRODUCT USED FOR UNKNOWN INDICATION
     Route: 048
     Dates: start: 201101, end: 201112

REACTIONS (4)
  - Cerebrovascular accident [Unknown]
  - Ulcer haemorrhage [Unknown]
  - Myocardial infarction [Unknown]
  - Multiple injuries [Unknown]

NARRATIVE: CASE EVENT DATE: 201107
